FAERS Safety Report 17509312 (Version 1)
Quarter: 2020Q1

REPORT INFORMATION
  Report Type: Spontaneous
  Country: US (occurrence: US)
  Receive Date: 20200306
  Receipt Date: 20200306
  Transmission Date: 20200409
  Serious: Yes (Other)
  Sender: FDA-Public Use
  Company Number: None

PATIENT
  Age: 48 Year
  Sex: Female
  Weight: 107 kg

DRUGS (12)
  1. FLONASE [Concomitant]
     Active Substance: FLUTICASONE PROPIONATE
  2. AZELASTINE. [Concomitant]
     Active Substance: AZELASTINE HYDROCHLORIDE
  3. BUDESONIDE-FORMOTEROL [Concomitant]
     Active Substance: BUDESONIDE\FORMOTEROL
  4. ATENOLOL. [Concomitant]
     Active Substance: ATENOLOL
  5. BENZONATATE. [Concomitant]
     Active Substance: BENZONATATE
  6. PANTOPRAZOLE [Concomitant]
     Active Substance: PANTOPRAZOLE
  7. AMLODIPINE [Concomitant]
     Active Substance: AMLODIPINE BESYLATE
  8. INSULIN [Concomitant]
     Active Substance: INSULIN NOS
  9. TIOTROPIUM [Concomitant]
     Active Substance: TIOTROPIUM
  10. DUPIXENT [Suspect]
     Active Substance: DUPILUMAB
     Indication: ASTHMA
     Dates: start: 20200302
  11. ZYRTEC [Concomitant]
     Active Substance: CETIRIZINE HYDROCHLORIDE
  12. DICLOFENAC TOPICAL GEL [Concomitant]

REACTIONS (2)
  - Injection site swelling [None]
  - Injection site rash [None]

NARRATIVE: CASE EVENT DATE: 20200305
